FAERS Safety Report 26066849 (Version 1)
Quarter: 2025Q4

REPORT INFORMATION
  Report Type: Spontaneous
  Country: US (occurrence: US)
  Receive Date: 20251119
  Receipt Date: 20251119
  Transmission Date: 20260117
  Serious: No
  Sender: PURDUE
  Company Number: US-PURDUE-USA-2025-0322188

PATIENT
  Age: 38 Year

DRUGS (1)
  1. NALMEFENE HYDROCHLORIDE [Suspect]
     Active Substance: NALMEFENE HYDROCHLORIDE
     Indication: Product used for unknown indication
     Dosage: 2 MILLIGRAM
     Route: 042

REACTIONS (1)
  - Off label use [Unknown]
